FAERS Safety Report 12240962 (Version 1)
Quarter: 2016Q2

REPORT INFORMATION
  Report Type: Spontaneous
  Country: US (occurrence: US)
  Receive Date: 20160406
  Receipt Date: 20160406
  Transmission Date: 20160815
  Serious: Yes (Other)
  Sender: FDA-Public Use
  Company Number: US-ROCHE-1737713

PATIENT
  Age: 62 Year
  Sex: Female

DRUGS (4)
  1. VICKS NYQUIL [Concomitant]
     Active Substance: ACETAMINOPHEN\DEXTROMETHORPHAN HYDROBROMIDE\DOXYLAMINE SUCCINATE
     Indication: INFLUENZA
  2. TAMIFLU [Suspect]
     Active Substance: OSELTAMIVIR PHOSPHATE
     Dosage: TAKE ONE IN MORNING AND ONE IN EVENING
     Route: 065
     Dates: start: 20160403, end: 20160405
  3. CEFDINIR. [Concomitant]
     Active Substance: CEFDINIR
     Dosage: TAKE ONE TWICE A DAY FOR 10DAYS
     Route: 065
     Dates: start: 20160403
  4. TAMIFLU [Suspect]
     Active Substance: OSELTAMIVIR PHOSPHATE
     Indication: INFLUENZA
     Route: 065

REACTIONS (1)
  - Hallucination [Recovered/Resolved]

NARRATIVE: CASE EVENT DATE: 20160403
